FAERS Safety Report 9986043 (Version 1)
Quarter: 2014Q1

REPORT INFORMATION
  Report Type: Report from Study
  Country: US (occurrence: US)
  Receive Date: 20140307
  Receipt Date: 20140307
  Transmission Date: 20141002
  Serious: No
  Sender: FDA-Public Use
  Company Number: US-ABBVIE-13P-163-1089586-00

PATIENT
  Age: 31 Year
  Sex: Female
  Weight: 70.37 kg

DRUGS (1)
  1. HUMIRA [Suspect]
     Indication: RHEUMATOID ARTHRITIS
     Dates: start: 20130416, end: 20130430

REACTIONS (7)
  - Rhinorrhoea [Recovered/Resolved]
  - Sinus congestion [Recovered/Resolved]
  - Ocular hyperaemia [Recovered/Resolved]
  - Throat tightness [Recovered/Resolved]
  - Rash pustular [Recovering/Resolving]
  - Rash generalised [Recovering/Resolving]
  - Headache [Recovered/Resolved]
